FAERS Safety Report 6696677-0 (Version None)
Quarter: 2010Q2

REPORT INFORMATION
  Report Type: 
  Country: None (occurrence: None)
  Receive Date: 20100421
  Receipt Date: 20090923
  Transmission Date: 20101027
  Serious: No
  Sender: FDA-Public Use
  Company Number: US-000041

PATIENT
  Sex: Female
  Weight: 52.1637 kg

DRUGS (2)
  1. KUVAN [Suspect]
     Indication: PHENYLKETONURIA
     Dosage: 1000 MG 1X/DAY ORAL
     Route: 048
     Dates: start: 20090901, end: 20090904
  2. ORTHO TRI-CYCLEN LO [Concomitant]

REACTIONS (2)
  - DISTURBANCE IN ATTENTION [None]
  - HEADACHE [None]
